FAERS Safety Report 19057700 (Version 2)
Quarter: 2021Q2

REPORT INFORMATION
  Report Type: Spontaneous
  Country: US (occurrence: US)
  Receive Date: 20210325
  Receipt Date: 20210503
  Transmission Date: 20210717
  Serious: No
  Sender: FDA-Public Use
  Company Number: US-PFIZER INC-2021293546

PATIENT
  Age: 58 Year
  Sex: Female

DRUGS (1)
  1. XELJANZ XR [Suspect]
     Active Substance: TOFACITINIB CITRATE
     Indication: RHEUMATOID ARTHRITIS
     Dosage: 11 MG, 1X/DAY (ONCE DAILY)
     Route: 048
     Dates: start: 202102

REACTIONS (8)
  - Pain [Unknown]
  - Chest pain [Unknown]
  - Peripheral swelling [Unknown]
  - Joint swelling [Unknown]
  - Blister [Unknown]
  - Muscle spasms [Unknown]
  - Ear infection [Unknown]
  - Disease recurrence [Unknown]
